FAERS Safety Report 17195655 (Version 1)
Quarter: 2019Q4

REPORT INFORMATION
  Report Type: Report from Study
  Country: IT (occurrence: IT)
  Receive Date: 20191224
  Receipt Date: 20191224
  Transmission Date: 20200122
  Serious: Yes (Other)
  Sender: FDA-Public Use
  Company Number: IT-TECHNOMED INC.-2078143

PATIENT
  Age: 63 Year
  Sex: Male

DRUGS (10)
  1. CATAPRESAN TTS (UNSPECIFIED STRENGTH) [Suspect]
     Active Substance: CLONIDINE
     Indication: HYPERTENSION
     Route: 062
     Dates: start: 20180827, end: 20190827
  2. VALIUM [Concomitant]
     Active Substance: DIAZEPAM
  3. CARDURA [Suspect]
     Active Substance: DOXAZOSIN MESYLATE
     Route: 048
     Dates: start: 20180827, end: 20190827
  4. GLICLAZIDE [Concomitant]
     Active Substance: GLICLAZIDE
  5. LUXAZONE [Concomitant]
     Active Substance: DEXAMETHASONE
  6. AMLODIPINE [Suspect]
     Active Substance: AMLODIPINE BESYLATE
     Route: 048
     Dates: start: 20180827, end: 20190827
  7. RAMIPRIL. [Suspect]
     Active Substance: RAMIPRIL
     Route: 048
     Dates: start: 20180827, end: 20190827
  8. METFORMIN HYDROCHLORIDE. [Concomitant]
     Active Substance: METFORMIN HYDROCHLORIDE
  9. PARACETAMOL [Concomitant]
     Active Substance: ACETAMINOPHEN
  10. CARDIOASPIRIN 100MG GASTRO-RESISTANT TABLETS [Concomitant]

REACTIONS (3)
  - Hypertensive crisis [Recovering/Resolving]
  - Headache [Recovering/Resolving]
  - Drug ineffective [Recovering/Resolving]

NARRATIVE: CASE EVENT DATE: 20190827
